FAERS Safety Report 8397496-X (Version None)
Quarter: 2012Q2

REPORT INFORMATION
  Report Type: 
  Country: None (occurrence: None)
  Receive Date: 20120529
  Receipt Date: 20120529
  Transmission Date: 20120825
  Serious: No
  Sender: FDA-Public Use
  Company Number: None

PATIENT
  Age: 57 Year
  Sex: Male
  Weight: 70.7 kg

DRUGS (2)
  1. TELAPREVIR [Suspect]
     Indication: HEPATITIS C
     Dosage: 2 TAB TID PO
     Route: 048
     Dates: start: 20120420
  2. PEGINTERFERON ALFA-2A [Suspect]
     Dosage: ML SQ
     Route: 058
     Dates: start: 20120420

REACTIONS (5)
  - ANAEMIA [None]
  - DIZZINESS [None]
  - FATIGUE [None]
  - CHILLS [None]
  - DYSPNOEA [None]
